FAERS Safety Report 4692367-4 (Version None)
Quarter: 2005Q2

REPORT INFORMATION
  Report Type: 
  Country: None (occurrence: None)
  Receive Date: 20050615
  Receipt Date: 20050601
  Transmission Date: 20051028
  Serious: Yes (Hospitalization)
  Sender: FDA-Public Use
  Company Number: FR_050606557

PATIENT
  Age: 46 Year
  Sex: Female

DRUGS (2)
  1. ZYPREXA [Suspect]
     Indication: BIPOLAR DISORDER
     Dosage: 20 MG/1 DAY
     Dates: start: 20050415
  2. TRANXENE [Concomitant]

REACTIONS (6)
  - ALANINE AMINOTRANSFERASE INCREASED [None]
  - ASPARTATE AMINOTRANSFERASE INCREASED [None]
  - DISEASE RECURRENCE [None]
  - LIVER DISORDER [None]
  - MANIA [None]
  - THERAPEUTIC RESPONSE DECREASED [None]
